FAERS Safety Report 17241640 (Version 1)
Quarter: 2020Q1

REPORT INFORMATION
  Report Type: Spontaneous
  Country: US (occurrence: US)
  Receive Date: 20200107
  Receipt Date: 20200107
  Transmission Date: 20200409
  Serious: No
  Sender: FDA-Public Use
  Company Number: US-TARO-2019TAR00120

PATIENT
  Age: 9 Month
  Sex: Female
  Weight: 11.79 kg

DRUGS (3)
  1. NEXIUM [Concomitant]
     Active Substance: ESOMEPRAZOLE MAGNESIUM
     Dosage: 15 MG, 1X/DAY
     Route: 048
  2. ONDANSETRON ORAL SOLUTION USP 4MG/5ML [Suspect]
     Active Substance: ONDANSETRON
     Indication: ENTEROCOLITIS
     Dosage: 2 MG
     Route: 048
     Dates: start: 20190212, end: 20190212
  3. RANITIDINE. [Concomitant]
     Active Substance: RANITIDINE
     Dosage: 1.95 ML, 2X/DAY

REACTIONS (3)
  - Urticaria [Recovered/Resolved]
  - Product administered to patient of inappropriate age [Recovered/Resolved]
  - Off label use [Recovered/Resolved]

NARRATIVE: CASE EVENT DATE: 20190212
